FAERS Safety Report 7505353-3 (Version None)
Quarter: 2011Q2

REPORT INFORMATION
  Report Type: 
  Country: None (occurrence: None)
  Receive Date: 20110526
  Receipt Date: 20110519
  Transmission Date: 20111010
  Serious: Yes (Hospitalization)
  Sender: FDA-Public Use
  Company Number: US-GILEAD-2011-0034914

PATIENT
  Sex: Female

DRUGS (6)
  1. LETAIRIS [Suspect]
     Indication: SCLERODERMA
  2. COUMADIN [Concomitant]
  3. DILTIAZEM [Concomitant]
  4. FUROSEMIDE [Concomitant]
  5. LETAIRIS [Suspect]
     Indication: PULMONARY HYPERTENSION
     Route: 048
     Dates: start: 20100422
  6. PREDNISONE [Concomitant]

REACTIONS (4)
  - PULMONARY HYPERTENSION [None]
  - PNEUMONIA FUNGAL [None]
  - SCLERODERMA [None]
  - PLEURAL EFFUSION [None]
